FAERS Safety Report 13049015 (Version 4)
Quarter: 2017Q1

REPORT INFORMATION
  Report Type: Spontaneous
  Country: US (occurrence: US)
  Receive Date: 20161221
  Receipt Date: 20170303
  Transmission Date: 20170428
  Serious: Yes (Death, Life-Threatening, Hospitalization, Other)
  Sender: FDA-Public Use
  Company Number: PHEH2016US032974

PATIENT
  Age: 66 Year
  Sex: Female

DRUGS (1)
  1. GILENYA [Suspect]
     Active Substance: FINGOLIMOD HYDROCHLORIDE
     Indication: RELAPSING-REMITTING MULTIPLE SCLEROSIS
     Dosage: 0.5 MG, QD
     Route: 048
     Dates: end: 20161103

REACTIONS (16)
  - Meningitis cryptococcal [Fatal]
  - Confusional state [Fatal]
  - Influenza [Unknown]
  - Cryptococcosis [Unknown]
  - Dehydration [Fatal]
  - Dyspnoea [Fatal]
  - Multiple sclerosis relapse [Recovering/Resolving]
  - Hemiparesis [Fatal]
  - Fungal test positive [Unknown]
  - Vision blurred [Recovering/Resolving]
  - Pulmonary embolism [Fatal]
  - Nausea [Fatal]
  - Personality change [Fatal]
  - Cardiac arrest [Unknown]
  - Asthenia [Fatal]
  - Influenza A virus test positive [Unknown]

NARRATIVE: CASE EVENT DATE: 201611
